FAERS Safety Report 24251677 (Version 2)
Quarter: 2024Q3

REPORT INFORMATION
  Report Type: Report from Study
  Country: KR (occurrence: KR)
  Receive Date: 20240827
  Receipt Date: 20240913
  Transmission Date: 20241016
  Serious: Yes (Life-Threatening, Hospitalization, Other)
  Sender: CELLTRION
  Company Number: KR-CELLTRION INC.-2024KR020050

PATIENT

DRUGS (13)
  1. HERZUMA [Suspect]
     Active Substance: TRASTUZUMAB-PKRB
     Indication: Breast cancer metastatic
     Dosage: 284 MG (BASE LINE: 35.5 KG, INITIAL DOSE WAS 8MG/KG)
     Route: 042
     Dates: start: 20240814
  2. HERZUMA [Suspect]
     Active Substance: TRASTUZUMAB-PKRB
     Dosage: UNK
     Route: 042
  3. HERZUMA [Suspect]
     Active Substance: TRASTUZUMAB-PKRB
     Dosage: UNK
     Route: 042
  4. FEMARA [Concomitant]
     Active Substance: LETROZOLE
     Dosage: 2.5 MG ONCE A DAY
     Route: 048
     Dates: start: 20240815
  5. FEMARA [Concomitant]
     Active Substance: LETROZOLE
     Dosage: 2.5 MG ONCE A DAY
     Route: 048
     Dates: start: 20240818
  6. FEMARA [Concomitant]
     Active Substance: LETROZOLE
     Dosage: 2.5 MG ONCE A DAY
     Route: 048
     Dates: start: 20240819
  7. KISQALI [Concomitant]
     Active Substance: RIBOCICLIB
     Dosage: 3 TABS TOTAL 600 MG TAKEN ONCE A DAY
     Dates: start: 20240815
  8. OXYCODONE HYDROCHLORIDE [Concomitant]
     Active Substance: OXYCODONE HYDROCHLORIDE
     Indication: Pain
     Dosage: 5 MG, PRN (UP TO 4 TIMES A DAY)
     Route: 048
     Dates: start: 20240722
  9. NAXOZOL [Concomitant]
     Indication: Pain
     Dosage: 20 MG, BID
     Route: 048
     Dates: start: 20240722
  10. NALOXONE HYDROCHLORIDE\OXYCODONE HYDROCHLORIDE [Concomitant]
     Active Substance: NALOXONE HYDROCHLORIDE\OXYCODONE HYDROCHLORIDE
     Indication: Pain
     Dosage: 10 MG, BID
     Route: 048
     Dates: start: 20240722, end: 20240806
  11. NALOXONE HYDROCHLORIDE\OXYCODONE HYDROCHLORIDE [Concomitant]
     Active Substance: NALOXONE HYDROCHLORIDE\OXYCODONE HYDROCHLORIDE
     Indication: Pain
     Dosage: 20 MG, BID
     Route: 048
     Dates: start: 20240807
  12. BANAN [Concomitant]
     Active Substance: CEFPODOXIME PROXETIL
     Indication: Inflammation
     Dosage: 100 MG, BID
     Route: 048
     Dates: start: 20240807
  13. FLASINYL [Concomitant]
     Indication: Inflammation
     Dosage: 250 MG, BID
     Route: 048
     Dates: start: 20240807

REACTIONS (3)
  - Colitis ischaemic [Not Recovered/Not Resolved]
  - Infectious pleural effusion [Unknown]
  - Pneumonia [Recovering/Resolving]

NARRATIVE: CASE EVENT DATE: 20240817
